FAERS Safety Report 7637400 (Version 7)
Quarter: 2012Q4

REPORT INFORMATION
  Report Type: Report from Study
  Country: DE (occurrence: FR)
  Receive Date: 20101022
  Receipt Date: 20121003
  Transmission Date: 20130627
  Serious: Yes (Other)
  Sender: FDA-Public Use
  Company Number: FR-BRISTOL-MYERS SQUIBB COMPANY-15344740

PATIENT
  Age: 53 Year
  Sex: Male
  Weight: 53 kg

DRUGS (4)
  1. CETUXIMAB [Suspect]
     Indication: HEAD AND NECK CANCER
     Dosage: Last dose on 11Oct2010.no of infusion:20 Recent inf 250mg/m2 17th inf 27Sep10.
Strength^5mg/ml
     Route: 042
     Dates: start: 20100413
  2. CISPLATIN FOR INJ [Suspect]
     Indication: HEAD AND NECK CANCER
     Dosage: Last dose on 03Aug2010 Recent inf 100mg/m2 6th inf 03Aug10.
     Route: 042
     Dates: start: 20100413
  3. CILENGITIDE [Suspect]
     Indication: HEAD AND NECK CANCER
     Dosage: Last dose on 11Oct2010.no of infusion:33 Recent inf 2000mg/m2 36th inf 27Sep10.
     Route: 042
     Dates: start: 20100413
  4. 5-FLUOROURACIL [Suspect]
     Indication: HEAD AND NECK CANCER
     Dosage: Con inf from day 1 to 4 cycle.Last dose04Aug2010Recent inf 1000mg/m2 6th inf 05Aug10.
     Route: 042
     Dates: start: 20100414

REACTIONS (1)
  - Amylase increased [Not Recovered/Not Resolved]
